FAERS Safety Report 5265553-2 (Version None)
Quarter: 2007Q1

REPORT INFORMATION
  Report Type: 
  Country: None (occurrence: None)
  Receive Date: 20070314
  Receipt Date: 20070309
  Transmission Date: 20070707
  Serious: Yes (Hospitalization)
  Sender: FDA-Public Use
  Company Number: AU-MERCK-0703AUS00042

PATIENT
  Sex: Female

DRUGS (3)
  1. VYTORIN [Suspect]
     Route: 048
  2. METFORMIN [Concomitant]
     Route: 065
  3. ANTIMICROBIAL (UNSPECIFIED) [Concomitant]
     Route: 065

REACTIONS (5)
  - CELLULITIS [None]
  - DEHYDRATION [None]
  - RHABDOMYOLYSIS [None]
  - SEPSIS [None]
  - SKIN ULCER [None]
